FAERS Safety Report 19715577 (Version 1)
Quarter: 2021Q3

REPORT INFORMATION
  Report Type: Other
  Country: HR (occurrence: HR)
  Receive Date: 20210818
  Receipt Date: 20210818
  Transmission Date: 20211014
  Serious: Yes (Hospitalization, Other)
  Sender: FDA-Public Use
  Company Number: HR-INNOGENIX, LLC-2115219

PATIENT
  Age: 46 Year
  Sex: Female

DRUGS (12)
  1. PROPRANOLOL HYDROCHLORIDE. [Suspect]
     Active Substance: PROPRANOLOL HYDROCHLORIDE
     Indication: MIGRAINE
     Route: 048
  2. PREDNISONE. [Interacting]
     Active Substance: PREDNISONE
     Route: 048
  3. SULFAMETHOXAZOLE AND TRIMETHOPRIM [Concomitant]
     Active Substance: SULFAMETHOXAZOLE\TRIMETHOPRIM
     Route: 065
  4. CEFTRIAXONE. [Interacting]
     Active Substance: CEFTRIAXONE
     Route: 042
  5. FUROSEMIDE. [Interacting]
     Active Substance: FUROSEMIDE
     Route: 048
  6. PANTOPRAZOLE SODIUM. [Interacting]
     Active Substance: PANTOPRAZOLE SODIUM
     Route: 048
  7. CALCITRIOL. [Interacting]
     Active Substance: CALCITRIOL
     Route: 048
  8. CALCIUM CARBONATE. [Concomitant]
     Active Substance: CALCIUM CARBONATE
     Route: 048
  9. CEFUROXIME. [Concomitant]
     Active Substance: CEFUROXIME
     Route: 048
  10. ATORVASTATIN [Interacting]
     Active Substance: ATORVASTATIN
     Route: 048
  11. DICLOFENAC SODIUM. [Interacting]
     Active Substance: DICLOFENAC SODIUM
     Route: 065
  12. METHYLPREDNISOLONE. [Concomitant]
     Active Substance: METHYLPREDNISOLONE
     Route: 042

REACTIONS (2)
  - Drug interaction [Recovered/Resolved]
  - Drug-induced liver injury [Recovered/Resolved]
